FAERS Safety Report 10260851 (Version 1)
Quarter: 2014Q2

REPORT INFORMATION
  Report Type: Spontaneous
  Country: CZ (occurrence: None)
  Receive Date: 20140623
  Receipt Date: 20140623
  Transmission Date: 20141212
  Serious: Yes (Life-Threatening, Hospitalization)
  Sender: FDA-Public Use
  Company Number: NL01PV14.35836

PATIENT
  Age: 33 Year
  Sex: Female

DRUGS (5)
  1. ZOLPIDEM [Suspect]
     Indication: SUICIDE ATTEMPT
     Route: 048
  2. OLANZAPINE [Suspect]
     Indication: DEPRESSION
     Route: 048
  3. ALPRAZOLAM (ALPRAZOLAM) [Suspect]
     Indication: SUICIDE ATTEMPT
     Route: 048
  4. CLONAZEPAM [Suspect]
     Indication: SUICIDE ATTEMPT
     Route: 048
  5. QUETIAPINE (QUETIAPINE) [Concomitant]

REACTIONS (4)
  - Depressed level of consciousness [None]
  - Hypoglycaemia [None]
  - Insulin C-peptide increased [None]
  - Intentional overdose [None]
